FAERS Safety Report 23683086 (Version 2)
Quarter: 2024Q2

REPORT INFORMATION
  Report Type: Spontaneous
  Country: PT (occurrence: PT)
  Receive Date: 20240328
  Receipt Date: 20240507
  Transmission Date: 20240716
  Serious: Yes (Hospitalization, Other)
  Sender: FDA-Public Use
  Company Number: PT-ZAMBON SWITZERLAND LTD.-2024-ZAM-PT000018

PATIENT

DRUGS (5)
  1. FOSFOMYCIN TROMETHAMINE [Suspect]
     Active Substance: FOSFOMYCIN TROMETHAMINE
     Indication: Urinary tract infection
     Dosage: UNK
     Route: 048
     Dates: start: 20240213, end: 20240214
  2. CYANOCOBALAMIN [Suspect]
     Active Substance: CYANOCOBALAMIN
     Indication: Product used for unknown indication
     Dosage: 1 MG
     Route: 048
     Dates: end: 20240103
  3. METAMIZOLE MAGNESIUM [Suspect]
     Active Substance: METAMIZOLE MAGNESIUM
     Indication: Product used for unknown indication
     Dosage: 575 MG
     Route: 048
     Dates: end: 20240103
  4. BROMAZEPAM [Concomitant]
     Active Substance: BROMAZEPAM
     Indication: Product used for unknown indication
     Dosage: 1.5 MG
     Route: 065
     Dates: start: 202310
  5. INDAPAMIDE\PERINDOPRIL [Concomitant]
     Active Substance: INDAPAMIDE\PERINDOPRIL
     Indication: Product used for unknown indication
     Dosage: UNK
     Route: 065

REACTIONS (1)
  - Stevens-Johnson syndrome [Recovering/Resolving]

NARRATIVE: CASE EVENT DATE: 20240222
